FAERS Safety Report 14387694 (Version 2)
Quarter: 2018Q3

REPORT INFORMATION
  Report Type: Spontaneous
  Country: US (occurrence: US)
  Receive Date: 20180115
  Receipt Date: 20180723
  Transmission Date: 20181010
  Serious: Yes (Other)
  Sender: FDA-Public Use
  Company Number: US-SA-2017SA183260

PATIENT
  Sex: Female
  Weight: 100 kg

DRUGS (2)
  1. TAXOTERE [Suspect]
     Active Substance: DOCETAXEL
     Indication: BREAST CANCER
     Dosage: 154 MG,QM
     Route: 042
     Dates: start: 20070108, end: 20070108
  2. TAXOTERE [Suspect]
     Active Substance: DOCETAXEL
     Dosage: 154 MG,QM
     Route: 042
     Dates: start: 20070423, end: 20070423

REACTIONS (2)
  - Alopecia [Recovering/Resolving]
  - Psychological trauma [Unknown]

NARRATIVE: CASE EVENT DATE: 200710
